FAERS Safety Report 14490761 (Version 1)
Quarter: 2018Q1

REPORT INFORMATION
  Report Type: Other
  Country: DE (occurrence: DE)
  Receive Date: 20180206
  Receipt Date: 20180206
  Transmission Date: 20180509
  Serious: Yes (Other)
  Sender: FDA-Public Use
  Company Number: DE-MACLEODS PHARMACEUTICALS US LTD-MAC2018009260

PATIENT

DRUGS (1)
  1. MEMANTINE. [Suspect]
     Active Substance: MEMANTINE
     Indication: MACULAR DEGENERATION
     Dosage: UNK, STRICTLY FOLLOWING THE INSTRUCTIONS OF THE PACKAGE LEAFLET
     Route: 065
     Dates: start: 201504

REACTIONS (2)
  - Off label use [Unknown]
  - Ophthalmic vein thrombosis [Unknown]
